FAERS Safety Report 8028551-1 (Version None)
Quarter: 2012Q1

REPORT INFORMATION
  Report Type: 
  Country: None (occurrence: None)
  Receive Date: 20120104
  Receipt Date: 20111219
  Transmission Date: 20120608
  Serious: Yes (Other)
  Sender: FDA-Public Use
  Company Number: 2011SP058946

PATIENT
  Age: 56 Year
  Sex: Female

DRUGS (4)
  1. BOCEPREVIR (SCH-503034) (200 MG) [Suspect]
     Indication: CHRONIC HEPATITIS
     Dosage: 2400 MG; PO
     Route: 048
     Dates: start: 20111118
  2. RIBAVIRIN [Suspect]
     Indication: CHRONIC HEPATITIS
     Dosage: 1200 MG; QD; PO, PO
     Route: 048
     Dates: start: 20111021, end: 20111201
  3. RIBAVIRIN [Suspect]
     Indication: CHRONIC HEPATITIS
     Dosage: 1200 MG; QD; PO, PO
     Route: 048
     Dates: start: 20111201
  4. PEG-INTRON [Suspect]
     Indication: CHRONIC HEPATITIS
     Dosage: 120 MCG; QW; SC
     Route: 058
     Dates: start: 20111021

REACTIONS (4)
  - APHONIA [None]
  - ANAEMIA [None]
  - ANGIOEDEMA [None]
  - DYSPHONIA [None]
